FAERS Safety Report 10842825 (Version 1)
Quarter: 2015Q1

REPORT INFORMATION
  Report Type: Report from Study
  Country: US (occurrence: US)
  Receive Date: 20150220
  Receipt Date: 20150220
  Transmission Date: 20150721
  Serious: No
  Sender: FDA-Public Use
  Company Number: US-ABBVIE-14P-163-1274496-00

PATIENT
  Age: 23 Year
  Sex: Male

DRUGS (4)
  1. HUMIRA [Suspect]
     Active Substance: ADALIMUMAB
     Indication: CROHN^S DISEASE
     Dosage: LOADING DOSE
     Dates: start: 20140804, end: 20140804
  2. PREDNISONE. [Concomitant]
     Active Substance: PREDNISONE
     Indication: CROHN^S DISEASE
  3. HUMIRA [Suspect]
     Active Substance: ADALIMUMAB
  4. ASACOL [Concomitant]
     Active Substance: MESALAMINE
     Indication: CROHN^S DISEASE
     Dosage: SIX 400 MG TABLETS PER DAY

REACTIONS (4)
  - Wrong technique in drug usage process [Unknown]
  - Injury associated with device [Unknown]
  - Injection site haemorrhage [Unknown]
  - Injection site warmth [Unknown]

NARRATIVE: CASE EVENT DATE: 20140818
